FAERS Safety Report 9581467 (Version 2)
Quarter: 2014Q1

REPORT INFORMATION
  Report Type: Spontaneous
  Country: ZA (occurrence: ZA)
  Receive Date: 20131002
  Receipt Date: 20140108
  Transmission Date: 20141002
  Serious: Yes (Other)
  Sender: FDA-Public Use
  Company Number: PHHY2013ZA108864

PATIENT
  Sex: Male

DRUGS (3)
  1. TEGRETOL [Suspect]
     Indication: CONVULSION
     Dosage: UNK UKN, UNK
  2. TEGRETOL [Suspect]
     Dosage: DOSE WAS UP TITRATED AS NEEDED SOME TIME ABOUT 3 TIMES
  3. EPILIM [Concomitant]
     Indication: CONVULSION
     Dosage: UNK UKN, UNK

REACTIONS (3)
  - Loss of consciousness [Unknown]
  - Convulsion [Unknown]
  - Vomiting [Unknown]
